FAERS Safety Report 7017784-9 (Version None)
Quarter: 2010Q3

REPORT INFORMATION
  Report Type: 
  Country: None (occurrence: None)
  Receive Date: 20100928
  Receipt Date: 20100917
  Transmission Date: 20110219
  Serious: Yes (Other)
  Sender: FDA-Public Use
  Company Number: US-ELI_LILLY_AND_COMPANY-US201009005266

PATIENT
  Sex: Female
  Weight: 89.342 kg

DRUGS (5)
  1. BYETTA [Suspect]
     Indication: TYPE 2 DIABETES MELLITUS
     Dosage: 5 UG, 2/D
     Route: 058
     Dates: start: 20100823
  2. SYNTHROID [Concomitant]
     Indication: THYROID DISORDER
     Dosage: 1.25 MG, EACH MORNING
     Route: 048
  3. CENESTIN [Concomitant]
     Indication: OESTROGEN REPLACEMENT THERAPY
     Dosage: 0.9 MG, DAILY (1/D)
     Route: 048
  4. CYMBALTA [Concomitant]
     Indication: FIBROMYALGIA
     Dosage: 60 MG, DAILY (1/D)
     Route: 048
  5. RITALIN [Concomitant]
     Dosage: 10 MG, AS NEEDED

REACTIONS (5)
  - BLOOD GLUCOSE INCREASED [None]
  - DIZZINESS [None]
  - GLYCOSYLATED HAEMOGLOBIN INCREASED [None]
  - NAUSEA [None]
  - SYNCOPE [None]
